FAERS Safety Report 6637474-1 (Version None)
Quarter: 2010Q1

REPORT INFORMATION
  Report Type: 
  Country: None (occurrence: None)
  Receive Date: 20100316
  Receipt Date: 20100308
  Transmission Date: 20100710
  Serious: Yes (Other)
  Sender: FDA-Public Use
  Company Number: US-BRISTOL-MYERS SQUIBB COMPANY-15007677

PATIENT
  Age: 46 Year
  Sex: Female

DRUGS (1)
  1. CARBIDOPA-LEVODOPA [Suspect]
     Indication: SPINOCEREBELLAR ATAXIA

REACTIONS (3)
  - DEPRESSION [None]
  - DYSKINESIA [None]
  - HYPOMANIA [None]
